FAERS Safety Report 11977041 (Version 1)
Quarter: 2016Q1

REPORT INFORMATION
  Report Type: Spontaneous
  Country: US (occurrence: US)
  Receive Date: 20160129
  Receipt Date: 20160129
  Transmission Date: 20160526
  Serious: No
  Sender: FDA-Public Use
  Company Number: US-PERRIGO-15US005994

PATIENT

DRUGS (1)
  1. IBUPROFEN AND DIPHENHYDRAMINE CITRATE [Suspect]
     Active Substance: DIPHENHYDRAMINE CITRATE\IBUPROFEN
     Indication: HEADACHE
     Dosage: TWO TABLETS, SINGLE
     Route: 048
     Dates: start: 201506

REACTIONS (6)
  - Nausea [Unknown]
  - Gastrointestinal tract irritation [Unknown]
  - Pain [Unknown]
  - Expired product administered [Unknown]
  - Condition aggravated [Unknown]
  - Palpitations [Unknown]

NARRATIVE: CASE EVENT DATE: 201506
